FAERS Safety Report 9366090 (Version 5)
Quarter: 2013Q3

REPORT INFORMATION
  Report Type: Spontaneous
  Country: AU (occurrence: AU)
  Receive Date: 20130625
  Receipt Date: 20130725
  Transmission Date: 20140515
  Serious: Yes (Hospitalization, Other)
  Sender: FDA-Public Use
  Company Number: AU-PFIZER INC-2013186371

PATIENT
  Age: 78 Year
  Sex: Male

DRUGS (6)
  1. DILANTIN [Suspect]
     Dosage: 200MG IN THE MORNING, 100MG AT NIGHT
     Dates: start: 1986
  2. AMIODARONE HCL [Interacting]
     Dosage: 1 TABLET ON MONDAYS, WEDNESDAYS AND FRIDAYS
     Dates: start: 20121022
  3. BISOPROLOL FUMARATE [Suspect]
     Dosage: UNK
     Dates: start: 2012
  4. WARFARIN [Suspect]
     Dosage: UNK
     Dates: start: 2012
  5. VYTORIN [Suspect]
     Dosage: UNK
  6. EPILIM [Concomitant]
     Dosage: 200 MG, 2X/DAY
     Dates: start: 20130520

REACTIONS (17)
  - Drug interaction [Recovered/Resolved]
  - Toxicity to various agents [Unknown]
  - Drug level increased [Unknown]
  - Balance disorder [Unknown]
  - Gait disturbance [Recovered/Resolved]
  - Dysarthria [Recovered/Resolved]
  - Asthenia [Unknown]
  - Fall [Unknown]
  - Visual field defect [Unknown]
  - Aura [Unknown]
  - Cardiac failure [Unknown]
  - Clonic convulsion [Unknown]
  - Ataxia [Unknown]
  - Coordination abnormal [Unknown]
  - Tremor [Unknown]
  - General physical health deterioration [Unknown]
  - Trigger finger [Unknown]
